FAERS Safety Report 9265676 (Version 1)
Quarter: 2013Q2

REPORT INFORMATION
  Report Type: Spontaneous
  Country: US (occurrence: US)
  Receive Date: 20130501
  Receipt Date: 20130501
  Transmission Date: 20140414
  Serious: Yes (Other)
  Sender: FDA-Public Use
  Company Number: US-ASTRAZENECA-2013SE28338

PATIENT
  Sex: Male

DRUGS (1)
  1. BRILINTA [Suspect]
     Indication: ANTIPLATELET THERAPY
     Route: 048
     Dates: start: 201304

REACTIONS (3)
  - Thrombosis in device [Recovering/Resolving]
  - Chest pain [Recovering/Resolving]
  - Discomfort [Recovering/Resolving]
